FAERS Safety Report 4854765-5 (Version None)
Quarter: 2005Q4

REPORT INFORMATION
  Report Type: 
  Country: None (occurrence: None)
  Receive Date: 20051215
  Receipt Date: 20051213
  Transmission Date: 20060501
  Serious: Yes (Life-Threatening)
  Sender: FDA-Public Use
  Company Number: NL-GLAXOSMITHKLINE-B0403604A

PATIENT
  Age: 28 Year

DRUGS (2)
  1. PAROXETINE HYDROCHLORIDE [Suspect]
     Indication: DEPRESSION
     Dosage: 20MG THREE TIMES PER DAY
     Route: 065
     Dates: end: 20020701
  2. RISPERDAL [Concomitant]
     Route: 065

REACTIONS (11)
  - HEARING IMPAIRED [None]
  - HYPERHIDROSIS [None]
  - LIBIDO DECREASED [None]
  - LIMB DISCOMFORT [None]
  - MALAISE [None]
  - NAUSEA [None]
  - SLEEP DISORDER [None]
  - SOMNOLENCE [None]
  - SUICIDAL IDEATION [None]
  - VISUAL ACUITY REDUCED [None]
  - WEIGHT INCREASED [None]
